FAERS Safety Report 20499005 (Version 2)
Quarter: 2022Q1

REPORT INFORMATION
  Report Type: Report from Study
  Country: US (occurrence: US)
  Receive Date: 20220222
  Receipt Date: 20220309
  Transmission Date: 20220424
  Serious: Yes (Other)
  Sender: FDA-Public Use
  Company Number: US-BIOVITRUM-2022US02331

PATIENT
  Age: 47 Year
  Sex: Female

DRUGS (2)
  1. KINERET [Suspect]
     Active Substance: ANAKINRA
     Indication: Rheumatoid arthritis
     Route: 058
     Dates: start: 20190423
  2. KINERET [Suspect]
     Active Substance: ANAKINRA
     Indication: Still^s disease

REACTIONS (13)
  - Pneumonia [Unknown]
  - Illness [Unknown]
  - COVID-19 [Unknown]
  - Pharyngitis [Unknown]
  - Sinusitis [Unknown]
  - Pain [Unknown]
  - Loss of personal independence in daily activities [Unknown]
  - Emotional disorder [Unknown]
  - Vomiting [Unknown]
  - Depressed mood [Unknown]
  - Pain [Unknown]
  - Injection site bruising [Unknown]
  - Off label use [Not Recovered/Not Resolved]

NARRATIVE: CASE EVENT DATE: 20190423
